FAERS Safety Report 6267876-7 (Version None)
Quarter: 2009Q3

REPORT INFORMATION
  Report Type: 
  Country: None (occurrence: None)
  Receive Date: 20090714
  Receipt Date: 20080624
  Transmission Date: 20100115
  Serious: No
  Sender: FDA-Public Use
  Company Number: BR-AVENTIS-200815482GDDC

PATIENT
  Age: 0 Year
  Sex: Male
  Weight: 3.09 kg

DRUGS (8)
  1. LANTUS [Suspect]
     Route: 015
     Dates: start: 20080101
  2. NOVORAPID [Concomitant]
     Dosage: DOSE: ACCORDING TO CARBOHYDRATE COUTING
     Route: 015
     Dates: start: 20060101
  3. NOVOLIN                            /00030501/ [Concomitant]
     Route: 015
     Dates: start: 19981015
  4. NOVOLIN                            /00030501/ [Concomitant]
     Route: 015
     Dates: start: 19981015
  5. MULTI-VITAMINS [Concomitant]
     Indication: PROPHYLAXIS
     Dosage: DOSE QUANTITY: 1
     Route: 064
     Dates: start: 20071201
  6. TYLENOL [Concomitant]
     Indication: HEADACHE
     Dosage: DOSE QUANTITY: 1
     Route: 064
     Dates: start: 20070101
  7. TYLENOL [Concomitant]
     Indication: BACK PAIN
     Dosage: DOSE QUANTITY: 1
     Route: 064
     Dates: start: 20070101
  8. SONRIDOR [Concomitant]
     Indication: HEADACHE
     Dosage: DOSE QUANTITY: 1
     Route: 064
     Dates: start: 20070101

REACTIONS (2)
  - DRUG EXPOSURE DURING PREGNANCY [None]
  - JAUNDICE NEONATAL [None]
